FAERS Safety Report 19885441 (Version 1)
Quarter: 2021Q3

REPORT INFORMATION
  Report Type: Spontaneous
  Country: US (occurrence: US)
  Receive Date: 20210927
  Receipt Date: 20210927
  Transmission Date: 20211014
  Serious: No
  Sender: FDA-Public Use
  Company Number: US-ELI_LILLY_AND_COMPANY-US202109007920

PATIENT
  Sex: Female

DRUGS (1)
  1. EMGALITY [Suspect]
     Active Substance: GALCANEZUMAB-GNLM
     Indication: MIGRAINE WITH AURA
     Dosage: 120 MG, UNKNOWN
     Route: 058

REACTIONS (4)
  - Pyrexia [Unknown]
  - Hypersensitivity [Unknown]
  - Arthralgia [Unknown]
  - Rash [Unknown]
